FAERS Safety Report 7055221-9 (Version None)
Quarter: 2010Q4

REPORT INFORMATION
  Report Type: 
  Country: None (occurrence: None)
  Receive Date: 20101021
  Receipt Date: 20101013
  Transmission Date: 20110411
  Serious: Yes (Hospitalization)
  Sender: FDA-Public Use
  Company Number: US-WYE-H18154310

PATIENT
  Age: 72 Year
  Sex: Female
  Weight: 74 kg

DRUGS (8)
  1. ADVIL [Suspect]
     Indication: BACK PAIN
     Dosage: 1 TABLET AS NEEDED
     Route: 048
     Dates: start: 20100901, end: 20101001
  2. LASIX [Concomitant]
     Dosage: UNKNOWN
     Route: 048
  3. EZETIMIBE [Concomitant]
     Indication: HYPERCHOLESTEROLAEMIA
     Dosage: UNKNOWN
     Route: 048
  4. PRILOSEC [Concomitant]
     Indication: GASTROOESOPHAGEAL REFLUX DISEASE
     Dosage: UNKNOWN
     Route: 048
  5. AMLODIPINE [Concomitant]
     Indication: HYPERTENSION
     Dosage: UNKNOWN
     Route: 048
  6. AVANDAMET [Concomitant]
     Indication: DIABETES MELLITUS
     Dosage: UNKNOWN
     Route: 048
  7. METOPROLOL TARTRATE [Concomitant]
     Indication: HYPERTENSION
     Dosage: UNKNOWN
     Route: 048
  8. SKELAXIN [Concomitant]
     Indication: MUSCLE SPASMS
     Dosage: UNKNOWN
     Route: 048

REACTIONS (2)
  - FAECES DISCOLOURED [None]
  - HAEMATEMESIS [None]
